FAERS Safety Report 16983341 (Version 1)
Quarter: 2019Q4

REPORT INFORMATION
  Report Type: Spontaneous
  Country: US (occurrence: US)
  Receive Date: 20191101
  Receipt Date: 20191101
  Transmission Date: 20200122
  Serious: No
  Sender: FDA-Public Use
  Company Number: US-009507513-1910USA016385

PATIENT
  Sex: Female

DRUGS (2)
  1. FOLLISTIM AQ [Suspect]
     Active Substance: FOLLITROPIN
     Indication: INFERTILITY FEMALE
     Dosage: 420 UNITS, QD
     Route: 058
     Dates: start: 20180405
  2. PUREGON PEN [DEVICE] [Suspect]
     Active Substance: DEVICE

REACTIONS (1)
  - Device malfunction [Unknown]
